FAERS Safety Report 17575159 (Version 13)
Quarter: 2021Q4

REPORT INFORMATION
  Report Type: Report from Study
  Country: US (occurrence: None)
  Receive Date: 20200324
  Receipt Date: 20211121
  Transmission Date: 20220304
  Serious: Yes (Hospitalization)
  Sender: FDA-Public Use
  Company Number: US-ROCHE-2569991

PATIENT
  Age: 75 Year
  Sex: Male
  Weight: 79 kg

DRUGS (24)
  1. COBIMETINIB [Suspect]
     Active Substance: COBIMETINIB
     Indication: Non-small cell lung cancer
     Route: 048
     Dates: start: 20200219, end: 20200303
  2. NEOSTIGMINE [Suspect]
     Active Substance: NEOSTIGMINE
     Indication: Ileus paralytic
     Route: 065
  3. NEOSTIGMINE [Suspect]
     Active Substance: NEOSTIGMINE
     Dosage: ON 07/MAR/2020, SURGERY WAS FOLLOWING FOR THE ILEUS AND THE SUBJECT WAS GIVEN 0.4 MG NEOSTIGMINE SUB
     Route: 058
     Dates: start: 20200307
  4. TYLENOL [Concomitant]
     Active Substance: ACETAMINOPHEN
     Route: 048
     Dates: start: 20191119
  5. VITAMIN C [Concomitant]
     Active Substance: ASCORBIC ACID
  6. VITAMIN D3 [Concomitant]
     Active Substance: CHOLECALCIFEROL
  7. AMARYL [Concomitant]
     Active Substance: GLIMEPIRIDE
  8. CHONDROITIN SULFATE (BOVINE)\GLUCOSAMINE HYDROCHLORIDE [Concomitant]
     Active Substance: CHONDROITIN SULFATE (BOVINE)\GLUCOSAMINE HYDROCHLORIDE
  9. COZAAR [Concomitant]
     Active Substance: LOSARTAN POTASSIUM
  10. FISH OIL [Concomitant]
     Active Substance: FISH OIL
  11. JANUMET [Concomitant]
     Active Substance: METFORMIN HYDROCHLORIDE\SITAGLIPTIN PHOSPHATE
     Dosage: XR
  12. ACETAMINOPHEN [Concomitant]
     Active Substance: ACETAMINOPHEN
     Dosage: EVERY SIX HOURS WHEN NEEDED
     Route: 048
  13. AMIODARONE HYDROCHLORIDE [Concomitant]
     Active Substance: AMIODARONE HYDROCHLORIDE
     Route: 048
  14. ASPIRIN [Concomitant]
     Active Substance: ASPIRIN
  15. CARVEDILOL [Concomitant]
     Active Substance: CARVEDILOL
     Dosage: TWO TIMES DAILY WITH MEALS
     Route: 048
  16. LOSARTAN POTASSIUM [Concomitant]
     Active Substance: LOSARTAN POTASSIUM
     Dosage: ONE TABLET BY?MOUTH ONCE DAILY
     Route: 048
  17. OMEGA-3 FATTY ACIDS [Concomitant]
     Active Substance: OMEGA-3 FATTY ACIDS
     Route: 031
  18. PANTOPRAZOLE SODIUM [Concomitant]
     Active Substance: PANTOPRAZOLE SODIUM
     Route: 048
  19. ROSUVASTATIN CALCIUM [Concomitant]
     Active Substance: ROSUVASTATIN CALCIUM
  20. METFORMIN HYDROCHLORIDE\SITAGLIPTIN PHOSPHATE [Concomitant]
     Active Substance: METFORMIN HYDROCHLORIDE\SITAGLIPTIN PHOSPHATE
     Dosage: 50-1000 MG ONE TABLET BY MOUTH WITH MEALS
     Route: 048
  21. TAMSULOSIN HYDROCHLORIDE [Concomitant]
     Active Substance: TAMSULOSIN HYDROCHLORIDE
     Route: 048
  22. ASCORBIC ACID;BIOFLAVONOIDS [Concomitant]
     Dosage: 1 TABLET
     Route: 048
  23. NITROGLYCERIN [Concomitant]
     Active Substance: NITROGLYCERIN
  24. ASPIRIN [Concomitant]
     Active Substance: ASPIRIN

REACTIONS (2)
  - Ileus paralytic [Recovered/Resolved]
  - Myocardial infarction [Recovered/Resolved]

NARRATIVE: CASE EVENT DATE: 20200302
